FAERS Safety Report 9165862 (Version 2)
Quarter: 2013Q1

REPORT INFORMATION
  Report Type: Spontaneous
  Country: DE (occurrence: DE)
  Receive Date: 20130315
  Receipt Date: 20130329
  Transmission Date: 20140127
  Serious: Yes (Hospitalization, Other)
  Sender: FDA-Public Use
  Company Number: DE-ABBOTT-13P-062-1060394-00

PATIENT
  Age: 50 None
  Sex: Female

DRUGS (1)
  1. HUMIRA [Suspect]
     Indication: CROHN^S DISEASE
     Route: 058
     Dates: start: 20110502, end: 20130210

REACTIONS (6)
  - Localised oedema [Recovering/Resolving]
  - Metastases to lymph nodes [Unknown]
  - Cerebrovascular accident [Recovering/Resolving]
  - Malignant melanoma [Recovering/Resolving]
  - Pneumonia [Recovering/Resolving]
  - Headache [Unknown]
